FAERS Safety Report 8188182-X (Version None)
Quarter: 2012Q1

REPORT INFORMATION
  Report Type: 
  Country: None (occurrence: None)
  Receive Date: 20120221
  Receipt Date: 20111222
  Transmission Date: 20120608
  Serious: Yes (Hospitalization)
  Sender: FDA-Public Use
  Company Number: PHEH2011US07210

PATIENT
  Age: 71 Year
  Sex: Female
  Weight: 50 kg

DRUGS (1)
  1. TOBI [Suspect]
     Dosage: 300 MG, BID, INHALATION
     Route: 055

REACTIONS (2)
  - DRUG INEFFECTIVE [None]
  - LUNG DISORDER [None]
